FAERS Safety Report 12830634 (Version 2)
Quarter: 2016Q4

REPORT INFORMATION
  Report Type: Spontaneous
  Country: FR (occurrence: FR)
  Receive Date: 20161007
  Receipt Date: 20161103
  Transmission Date: 20170207
  Serious: Yes (Hospitalization)
  Sender: FDA-Public Use
  Company Number: FR-ASTRAZENECA-2016SF05173

PATIENT
  Age: 50 Year
  Sex: Female

DRUGS (12)
  1. AMOXICILLINE/CLAVULANIC ACID [Suspect]
     Active Substance: AMOXICILLIN\CLAVULANIC ACID
     Indication: THERAPEUTIC PROCEDURE
     Route: 048
     Dates: start: 20160720, end: 20160727
  2. EBASTINE [Suspect]
     Active Substance: EBASTINE
     Indication: URTICARIA
     Route: 065
     Dates: start: 20160816, end: 20160820
  3. LASILIX FAIBLE [Suspect]
     Active Substance: FUROSEMIDE
     Dosage: 20.0MG UNKNOWN
     Route: 048
     Dates: start: 20160708, end: 20160826
  4. INEXIUM [Suspect]
     Active Substance: ESOMEPRAZOLE
     Dosage: 40.0MG UNKNOWN
     Route: 048
     Dates: start: 20160708, end: 20160826
  5. ATARAX [Suspect]
     Active Substance: HYDROXYZINE\HYDROXYZINE HYDROCHLORIDE
     Route: 065
     Dates: start: 201606, end: 20160616
  6. ATARAX [Suspect]
     Active Substance: HYDROXYZINE\HYDROXYZINE HYDROCHLORIDE
     Route: 065
     Dates: start: 20160816, end: 20160826
  7. LOSARTAN. [Concomitant]
     Active Substance: LOSARTAN
  8. PAROXETINE. [Concomitant]
     Active Substance: PAROXETINE
  9. EBASTINE [Suspect]
     Active Substance: EBASTINE
     Indication: URTICARIA
     Route: 065
     Dates: start: 20160602, end: 20160702
  10. DECAPEPTYL [Suspect]
     Active Substance: TRIPTORELIN
     Route: 065
     Dates: start: 20160727, end: 20160727
  11. AMOXICILLINE/CLAVULANIC ACID [Suspect]
     Active Substance: AMOXICILLIN\CLAVULANIC ACID
     Indication: THERAPEUTIC PROCEDURE
     Route: 048
     Dates: start: 20160602, end: 20160616
  12. AMOXICILLINE/CLAVULANIC ACID [Suspect]
     Active Substance: AMOXICILLIN\CLAVULANIC ACID
     Indication: THERAPEUTIC PROCEDURE
     Route: 048
     Dates: start: 20160825, end: 20160826

REACTIONS (1)
  - Drug reaction with eosinophilia and systemic symptoms [Recovering/Resolving]
